FAERS Safety Report 8602418-X (Version None)
Quarter: 2012Q3

REPORT INFORMATION
  Report Type: 
  Country: None (occurrence: None)
  Receive Date: 20120817
  Receipt Date: 20120813
  Transmission Date: 20120928
  Serious: Yes (Hospitalization, Other)
  Sender: FDA-Public Use
  Company Number: CA-ROCHE-1074725

PATIENT
  Sex: Male

DRUGS (10)
  1. ZELBORAF [Suspect]
     Dosage: THERAPY RESTARTED
     Route: 048
     Dates: start: 20120723
  2. VIAGRA [Concomitant]
  3. CRESTOR [Concomitant]
  4. CARVEDILOL [Concomitant]
  5. TEVA-AMLODIPINE [Concomitant]
  6. TYLENOL [Concomitant]
  7. ALTACE [Concomitant]
  8. ZELBORAF [Suspect]
     Indication: METASTATIC MALIGNANT MELANOMA
     Route: 048
     Dates: start: 20120501, end: 20120613
  9. FUROSEMIDE TEVA [Concomitant]
  10. METFORMIN HYDROCHLORIDE [Concomitant]

REACTIONS (7)
  - FATIGUE [None]
  - DEHYDRATION [None]
  - NASOPHARYNGITIS [None]
  - DECREASED APPETITE [None]
  - PARAESTHESIA [None]
  - BLOOD CREATININE INCREASED [None]
  - DYSGEUSIA [None]
